FAERS Safety Report 10245939 (Version 1)
Quarter: 2014Q2

REPORT INFORMATION
  Report Type: Spontaneous
  Country: US (occurrence: US)
  Receive Date: 20140619
  Receipt Date: 20140619
  Transmission Date: 20141212
  Serious: No
  Sender: FDA-Public Use
  Company Number: US-ASTRAZENECA-2014SE40978

PATIENT
  Age: 65 Year
  Sex: Female

DRUGS (1)
  1. SYMBICORT  PMDI [Suspect]
     Indication: CHRONIC OBSTRUCTIVE PULMONARY DISEASE
     Dosage: 160 MG, TWO TIMES A DAY
     Route: 055
     Dates: start: 20100601, end: 20140602

REACTIONS (2)
  - Dyspnoea [Not Recovered/Not Resolved]
  - Drug dose omission [Not Recovered/Not Resolved]
